FAERS Safety Report 25279651 (Version 1)
Quarter: 2025Q2

REPORT INFORMATION
  Report Type: Spontaneous
  Country: US (occurrence: US)
  Receive Date: 20250507
  Receipt Date: 20250507
  Transmission Date: 20250717
  Serious: No
  Sender: CALLIDITAS THERAPEUTICS AB
  Company Number: US-Calliditas-2025CAL01070

PATIENT
  Age: 27 Year
  Sex: Female

DRUGS (13)
  1. TARPEYO [Suspect]
     Active Substance: BUDESONIDE
     Indication: IgA nephropathy
     Route: 048
     Dates: start: 20250415, end: 20250415
  2. AMOXICILLIN [Concomitant]
     Active Substance: AMOXICILLIN
  3. ARANESP [Concomitant]
     Active Substance: DARBEPOETIN ALFA
  4. FAMOTIDINE [Concomitant]
     Active Substance: FAMOTIDINE
  5. FISH OIL [Concomitant]
     Active Substance: FISH OIL
  6. FLORASTOR [SACCHAROMYCES BOULARDII] [Concomitant]
  7. JARDIANCE [Concomitant]
     Active Substance: EMPAGLIFLOZIN
  8. LABETALOL [Concomitant]
     Active Substance: LABETALOL
  9. OYSCO 500+D [Concomitant]
  10. PREDNISONE [Concomitant]
     Active Substance: PREDNISONE
  11. SODIUM BICARBONATE [Concomitant]
     Active Substance: SODIUM BICARBONATE
  12. SULFAMETHOCAZOLE [Concomitant]
  13. VITAMIN D2 [Concomitant]
     Active Substance: ERGOCALCIFEROL

REACTIONS (2)
  - Feeling abnormal [Unknown]
  - Fatigue [Unknown]
